FAERS Safety Report 9753804 (Version 1)
Quarter: 2013Q4

REPORT INFORMATION
  Report Type: Spontaneous
  Country: CA (occurrence: None)
  Receive Date: 20131211
  Receipt Date: 20131211
  Transmission Date: 20140711
  Serious: Yes (Disabling)
  Sender: FDA-Public Use
  Company Number: UTC-023772

PATIENT
  Age: 63 Year
  Sex: Female

DRUGS (1)
  1. REMODULIN [Suspect]
     Indication: PULMONARY ARTERIAL HYPERTENSION
     Dosage: 1 IN 1 MIN
     Route: 058
     Dates: start: 20120516

REACTIONS (3)
  - Pain in extremity [None]
  - Burning sensation [None]
  - Gait disturbance [None]
